FAERS Safety Report 13909788 (Version 2)
Quarter: 2017Q4

REPORT INFORMATION
  Report Type: Spontaneous
  Country: US (occurrence: US)
  Receive Date: 20170828
  Receipt Date: 20171012
  Transmission Date: 20180320
  Serious: No
  Sender: FDA-Public Use
  Company Number: US-CELGENEUS-USA-20170806295

PATIENT
  Age: 66 Year
  Sex: Male
  Weight: 122 kg

DRUGS (2)
  1. OTEZLA [Suspect]
     Active Substance: APREMILAST
     Dosage: 60 MILLIGRAM
     Route: 048
     Dates: start: 20161214
  2. OTEZLA [Suspect]
     Active Substance: APREMILAST
     Indication: PSORIASIS
     Dosage: 60 MILLIGRAM
     Route: 048
     Dates: start: 201611

REACTIONS (6)
  - Secretion discharge [Not Recovered/Not Resolved]
  - Psoriasis [Recovering/Resolving]
  - Pruritus generalised [Not Recovered/Not Resolved]
  - Cough [Not Recovered/Not Resolved]
  - Stasis dermatitis [Unknown]
  - Rash generalised [Unknown]

NARRATIVE: CASE EVENT DATE: 201612
